FAERS Safety Report 25220091 (Version 1)
Quarter: 2025Q2

REPORT INFORMATION
  Report Type: Spontaneous
  Country: US (occurrence: US)
  Receive Date: 20250421
  Receipt Date: 20250421
  Transmission Date: 20250717
  Serious: No
  Sender: GUERBET
  Company Number: US-GUERBET / LLC-US-20250019

PATIENT
  Age: 74 Year
  Sex: Female

DRUGS (1)
  1. DOTAREM [Suspect]
     Active Substance: GADOTERATE MEGLUMINE
     Indication: Magnetic resonance imaging heart
     Route: 051
     Dates: start: 20250122, end: 20250122

REACTIONS (2)
  - Urticaria [Recovered/Resolved]
  - Off label use [Recovered/Resolved]

NARRATIVE: CASE EVENT DATE: 20250122
